FAERS Safety Report 10407294 (Version 2)
Quarter: 2015Q1

REPORT INFORMATION
  Report Type: Spontaneous
  Country: US (occurrence: US)
  Receive Date: 20140825
  Receipt Date: 20150224
  Transmission Date: 20150720
  Serious: Yes (Congenital Anomaly, Other)
  Sender: FDA-Public Use
  Company Number: US-ELI_LILLY_AND_COMPANY-US201408005753

PATIENT
  Age: 6 Month

DRUGS (10)
  1. HYDROCODONE [Concomitant]
     Active Substance: HYDROCODONE
     Indication: BACK PAIN
  2. PROZAC WEEKLY [Suspect]
     Active Substance: FLUOXETINE HYDROCHLORIDE
     Indication: PRODUCT USED FOR UNKNOWN INDICATION
     Dosage: UNK, WEEKLY (1/W)
     Route: 064
  3. TANDEM [Concomitant]
     Active Substance: FERROUS ASPARTO GLYCINATE\FERROUS FUMARATE
     Indication: ANAEMIA
  4. EFFEXOR [Concomitant]
     Active Substance: VENLAFAXINE HYDROCHLORIDE
  5. LEXAPRO [Concomitant]
     Active Substance: ESCITALOPRAM OXALATE
     Indication: DEPRESSION
     Dosage: 10 MG, QD
  6. EFFEXOR [Concomitant]
     Active Substance: VENLAFAXINE HYDROCHLORIDE
  7. HYDROCODONE [Concomitant]
     Active Substance: HYDROCODONE
     Indication: BACK PAIN
  8. PROZAC WEEKLY [Suspect]
     Active Substance: FLUOXETINE HYDROCHLORIDE
     Indication: PRODUCT USED FOR UNKNOWN INDICATION
     Dosage: UNK, WEEKLY (1/W)
     Route: 064
  9. TANDEM [Concomitant]
     Active Substance: FERROUS ASPARTO GLYCINATE\FERROUS FUMARATE
     Indication: ANAEMIA
  10. LEXAPRO [Concomitant]
     Active Substance: ESCITALOPRAM OXALATE
     Indication: DEPRESSION
     Dosage: 10 MG, QD

REACTIONS (5)
  - Cleft palate [Recovered/Resolved]
  - Foetal exposure during pregnancy [Recovered/Resolved]
  - Weight decreased [Recovered/Resolved]
  - Respiratory distress [Recovered/Resolved]
  - Large for dates baby [Recovered/Resolved]

NARRATIVE: CASE EVENT DATE: 20090514
